FAERS Safety Report 5659506-X (Version None)
Quarter: 2008Q1

REPORT INFORMATION
  Report Type: 
  Country: None (occurrence: None)
  Receive Date: 20080311
  Receipt Date: 20080226
  Transmission Date: 20080703
  Serious: Yes (Other)
  Sender: FDA-Public Use
  Company Number: PHHY2008JP02114

PATIENT
  Sex: Male

DRUGS (5)
  1. PILOCARPINE HYDROCHLORIDE [Suspect]
     Indication: DRY MOUTH
     Dosage: 5 MG, TID
     Route: 048
     Dates: start: 20071024, end: 20071227
  2. AZULENE [Concomitant]
     Dates: start: 20071024
  3. EURODIN [Concomitant]
     Indication: INSOMNIA
     Dosage: UNK, UNK
     Dates: start: 20071107
  4. LOXONIN [Concomitant]
     Indication: STOMATITIS
     Dates: start: 20071107, end: 20071217
  5. MUCOSTA [Concomitant]
     Indication: GASTRITIS PROPHYLAXIS
     Dates: start: 20071107, end: 20071227

REACTIONS (8)
  - ALANINE AMINOTRANSFERASE INCREASED [None]
  - ASPARTATE AMINOTRANSFERASE INCREASED [None]
  - BLOOD ALKALINE PHOSPHATASE INCREASED [None]
  - BLOOD LACTATE DEHYDROGENASE INCREASED [None]
  - CONDITION AGGRAVATED [None]
  - GAMMA-GLUTAMYLTRANSFERASE INCREASED [None]
  - HEPATIC FUNCTION ABNORMAL [None]
  - LIVER FUNCTION TEST ABNORMAL [None]
